FAERS Safety Report 11839531 (Version 6)
Quarter: 2017Q1

REPORT INFORMATION
  Report Type: Report from Study
  Country: BR (occurrence: BR)
  Receive Date: 20151216
  Receipt Date: 20170110
  Transmission Date: 20170428
  Serious: Yes (Hospitalization, Other)
  Sender: FDA-Public Use
  Company Number: BR-ROCHE-1283760

PATIENT
  Sex: Female
  Weight: 67 kg

DRUGS (8)
  1. TYLEX (BRAZIL) [Suspect]
     Active Substance: ACETAMINOPHEN\CODEINE PHOSPHATE
     Indication: PRODUCT USED FOR UNKNOWN INDICATION
     Route: 065
  2. METICORTEN [Concomitant]
     Active Substance: PREDNISONE
     Dosage: IN THE MORNING AND AT NIGHT
     Route: 065
  3. ACTEMRA [Suspect]
     Active Substance: TOCILIZUMAB
     Indication: RHEUMATOID ARTHRITIS
     Route: 042
     Dates: start: 20100504, end: 20161222
  4. SOMALGIN [Concomitant]
     Active Substance: ASPIRIN\DIHYDROXYALUMINUM AMINOACETATE ANHYDROUS\MAGNESIUM CARBONATE
  5. METICORTEN [Concomitant]
     Active Substance: PREDNISONE
     Indication: RHEUMATOID ARTHRITIS
     Dosage: IN THE MORNING AND AT NIGHT
     Route: 048
  6. FLU VACCINE [Concomitant]
     Active Substance: INFLUENZA VIRUS VACCINE
  7. METICORTEN [Concomitant]
     Active Substance: PREDNISONE
     Dosage: HALF TABLET IN THE MORNING AND HALF TABLET IN THE EVENING
     Route: 065
  8. DIPYRONE [Concomitant]
     Active Substance: DIPYRONE

REACTIONS (21)
  - Gastrointestinal disorder [Unknown]
  - Influenza [Recovered/Resolved]
  - Immunodeficiency [Not Recovered/Not Resolved]
  - Ill-defined disorder [Unknown]
  - Arthralgia [Unknown]
  - Weight increased [Unknown]
  - Tendon rupture [Unknown]
  - Tendon disorder [Unknown]
  - Joint effusion [Unknown]
  - Constipation [Unknown]
  - Pharyngeal inflammation [Recovered/Resolved]
  - Blood cholesterol increased [Not Recovered/Not Resolved]
  - Bronchiolitis [Unknown]
  - Breast neoplasm [Unknown]
  - Antiphospholipid syndrome [Unknown]
  - Pyrexia [Recovered/Resolved]
  - Gastric disorder [Unknown]
  - Joint stiffness [Unknown]
  - Blood cholesterol increased [Unknown]
  - Antiphospholipid syndrome [Unknown]
  - Ear disorder [Recovered/Resolved]

NARRATIVE: CASE EVENT DATE: 2014
